FAERS Safety Report 8009485-5 (Version None)
Quarter: 2011Q4

REPORT INFORMATION
  Report Type: 
  Country: None (occurrence: None)
  Receive Date: 20111227
  Receipt Date: 20111216
  Transmission Date: 20120403
  Serious: Yes (Other)
  Sender: FDA-Public Use
  Company Number: JP-RB-035637-11

PATIENT
  Age: 65 Year
  Sex: Female

DRUGS (1)
  1. BUPRENORPHINE HCL [Suspect]
     Indication: BONE TUBERCULOSIS
     Dosage: 2 DOSAGE FORM
     Route: 054

REACTIONS (2)
  - CONFUSIONAL STATE [None]
  - DEPENDENCE [None]
